FAERS Safety Report 7573978-5 (Version None)
Quarter: 2011Q2

REPORT INFORMATION
  Report Type: 
  Country: None (occurrence: None)
  Receive Date: 20110627
  Receipt Date: 20110623
  Transmission Date: 20111010
  Serious: Yes (Other)
  Sender: FDA-Public Use
  Company Number: US-GILEAD-2011-0040937

PATIENT
  Sex: Male
  Weight: 93.4 kg

DRUGS (11)
  1. ASCORBIC ACID [Concomitant]
     Dates: start: 20050201
  2. FOLIC ACID [Concomitant]
     Dates: start: 20050101
  3. CREON [Concomitant]
     Dates: start: 20050101
  4. MEPHYTON [Concomitant]
     Dates: start: 20050201
  5. TOBI [Concomitant]
     Dates: start: 20050401
  6. ADVAIR DISKUS 100/50 [Concomitant]
     Dates: start: 20081101
  7. PULMOZYME [Concomitant]
     Dates: start: 20090601
  8. FLUTICASONE PROPIONATE [Concomitant]
     Dates: start: 20050101
  9. ALBUTEROL SULFATE AUTOHALER [Concomitant]
     Dates: start: 20050101
  10. CAYSTON [Suspect]
     Indication: CYSTIC FIBROSIS
     Dates: start: 20110427
  11. AZITHROMYCIN [Concomitant]
     Dates: start: 20050101

REACTIONS (6)
  - BACK PAIN [None]
  - CHEST PAIN [None]
  - VOMITING [None]
  - DYSPNOEA [None]
  - CHEST DISCOMFORT [None]
  - PAIN IN EXTREMITY [None]
